FAERS Safety Report 13735436 (Version 1)
Quarter: 2017Q3

REPORT INFORMATION
  Report Type: Spontaneous
  Country: US (occurrence: US)
  Receive Date: 20170707
  Receipt Date: 20170707
  Transmission Date: 20171127
  Serious: No
  Sender: FDA-Public Use
  Company Number: None

PATIENT
  Age: 39 Year
  Sex: Female
  Weight: 47.5 kg

DRUGS (1)
  1. SSKI [Suspect]
     Active Substance: POTASSIUM IODIDE
     Indication: BASEDOW^S DISEASE
     Dosage: ?          OTHER DOSE:ML;?
     Route: 048
     Dates: start: 20170707, end: 20170707

REACTIONS (2)
  - Incorrect dose administered [None]
  - Drug dispensing error [None]

NARRATIVE: CASE EVENT DATE: 20170707
